FAERS Safety Report 13112866 (Version 8)
Quarter: 2018Q4

REPORT INFORMATION
  Report Type: Spontaneous
  Country: US (occurrence: US)
  Receive Date: 20170113
  Receipt Date: 20181024
  Transmission Date: 20190204
  Serious: Yes (Congenital Anomaly, Other)
  Sender: FDA-Public Use
  Company Number: PHEH2017US001233

PATIENT
  Sex: Female

DRUGS (3)
  1. ZOFRAN [Suspect]
     Active Substance: ONDANSETRON HYDROCHLORIDE
     Indication: FOETAL EXPOSURE DURING PREGNANCY
     Dosage: MOTHER DOSE: UNK
     Route: 064
  2. ONDANSETRON HYDROCHLORIDE. [Suspect]
     Active Substance: ONDANSETRON HYDROCHLORIDE
     Indication: FOETAL EXPOSURE DURING PREGNANCY
     Dosage: MOTHER DOSE: 8 MG QD, 4 MG UNK
     Route: 064
  3. ONDANSETRON HYDROCHLORIDE. [Suspect]
     Active Substance: ONDANSETRON HYDROCHLORIDE
     Indication: FOETAL EXPOSURE DURING PREGNANCY
     Dosage: MOTHER DOSE: 04 MG, Q6H
     Route: 064

REACTIONS (46)
  - Cleft palate [Unknown]
  - Skin disorder [Unknown]
  - Pyrexia [Unknown]
  - Aphthous ulcer [Unknown]
  - Speech disorder [Unknown]
  - Congenital anomaly [Unknown]
  - Heart disease congenital [Unknown]
  - Neonatal tachypnoea [Unknown]
  - Hypoxia [Unknown]
  - Sepsis neonatal [Unknown]
  - Respiratory failure [Unknown]
  - Bradycardia neonatal [Unknown]
  - Foetal exposure during pregnancy [Unknown]
  - Anhedonia [Unknown]
  - Otitis media [Unknown]
  - Dyspnoea [Unknown]
  - Nasopharyngitis [Unknown]
  - Neonatal infection [Unknown]
  - Injury [Unknown]
  - Pain [Unknown]
  - Deformity [Unknown]
  - Hyperbilirubinaemia neonatal [Unknown]
  - Impetigo [Unknown]
  - Diarrhoea [Unknown]
  - Vomiting [Unknown]
  - Swelling face [Unknown]
  - Neonatal respiratory distress [Unknown]
  - Hypoglycaemia neonatal [Unknown]
  - Infantile apnoea [Unknown]
  - Anxiety [Unknown]
  - Umbilical hernia [Unknown]
  - Nasal congestion [Unknown]
  - Cleft lip [Unknown]
  - Neonatal tachycardia [Unknown]
  - Respiratory disorder neonatal [Unknown]
  - Upper respiratory tract infection [Unknown]
  - Rash [Unknown]
  - Cytogenetic abnormality [Unknown]
  - Emotional distress [Unknown]
  - Eczema [Unknown]
  - Rhinorrhoea [Unknown]
  - Cough [Unknown]
  - Eustachian tube dysfunction [Unknown]
  - Neurological decompensation [Unknown]
  - Ear infection [Unknown]
  - Candida infection [Unknown]
